FAERS Safety Report 7303947-1 (Version None)
Quarter: 2011Q1

REPORT INFORMATION
  Report Type: 
  Country: None (occurrence: None)
  Receive Date: 20110221
  Receipt Date: 20110216
  Transmission Date: 20110831
  Serious: Yes (Life-Threatening)
  Sender: FDA-Public Use
  Company Number: JP-ASTRAZENECA-2011SE09010

PATIENT
  Age: 71 Year
  Sex: Male

DRUGS (3)
  1. MIDAZOLAM [Suspect]
     Indication: INDUCTION OF ANAESTHESIA
  2. PENTAZOCINE LACTATE [Concomitant]
     Indication: INDUCTION OF ANAESTHESIA
     Route: 065
  3. DIPRIVAN [Suspect]
     Indication: INDUCTION AND MAINTENANCE OF ANAESTHESIA
     Dosage: 20 MG IN BOLUS, 100 MG/H
     Route: 042

REACTIONS (1)
  - RESPIRATORY DEPRESSION [None]
